FAERS Safety Report 11371020 (Version 1)
Quarter: 2015Q3

REPORT INFORMATION
  Report Type: Spontaneous
  Country: IT (occurrence: IT)
  Receive Date: 20150812
  Receipt Date: 20150812
  Transmission Date: 20151125
  Serious: Yes (Other)
  Sender: FDA-Public Use
  Company Number: IT-FRESENIUS KABI-FK201503774

PATIENT
  Age: 17 Month
  Sex: Female

DRUGS (2)
  1. CALCIUM GLUCONATE (MANUFACTURER UNKNOWN) [Suspect]
     Active Substance: CALCIUM GLUCONATE
     Indication: HYPOKALAEMIA
     Route: 042
  2. CALCIUM GLUCONATE (MANUFACTURER UNKNOWN) [Suspect]
     Active Substance: CALCIUM GLUCONATE
     Indication: HYPERPHOSPHATAEMIA

REACTIONS (1)
  - Cutaneous calcification [Recovering/Resolving]
